FAERS Safety Report 17943433 (Version 1)
Quarter: 2020Q2

REPORT INFORMATION
  Report Type: Spontaneous
  Country: US (occurrence: US)
  Receive Date: 20200625
  Receipt Date: 20200625
  Transmission Date: 20200714
  Serious: Yes (Other)
  Sender: FDA-Public Use
  Company Number: US-BAYER-2020-122329

PATIENT
  Sex: Female

DRUGS (1)
  1. LEVONORGESTREL IUS [UNKNOWN] [Suspect]
     Active Substance: LEVONORGESTREL
     Dosage: UNK
     Route: 015
     Dates: start: 20190419

REACTIONS (4)
  - Menorrhagia [Recovered/Resolved]
  - Pelvic pain [None]
  - Abdominal pain upper [None]
  - Genital haemorrhage [Not Recovered/Not Resolved]

NARRATIVE: CASE EVENT DATE: 202005
